FAERS Safety Report 7382840-2 (Version None)
Quarter: 2011Q1

REPORT INFORMATION
  Report Type: 
  Country: None (occurrence: None)
  Receive Date: 20110330
  Receipt Date: 20091222
  Transmission Date: 20110831
  Serious: No
  Sender: FDA-Public Use
  Company Number: 2009BI041997

PATIENT
  Sex: Male

DRUGS (1)
  1. TYSABRI [Suspect]
     Indication: MULTIPLE SCLEROSIS
     Route: 042
     Dates: start: 20090910, end: 20100430

REACTIONS (7)
  - SPEECH DISORDER [None]
  - GAIT DISTURBANCE [None]
  - HYPERSOMNIA [None]
  - MUSCULAR WEAKNESS [None]
  - MOBILITY DECREASED [None]
  - CHROMATURIA [None]
  - ABASIA [None]
